FAERS Safety Report 9831268 (Version 2)
Quarter: 2014Q1

REPORT INFORMATION
  Report Type: Report from Study
  Country: CA (occurrence: CA)
  Receive Date: 20140121
  Receipt Date: 20140128
  Transmission Date: 20141002
  Serious: Yes (Other)
  Sender: FDA-Public Use
  Company Number: CA-ROCHE-1335577

PATIENT
  Sex: Female
  Weight: 60 kg

DRUGS (6)
  1. RITUXAN [Suspect]
     Indication: RHEUMATOID ARTHRITIS
     Route: 042
     Dates: start: 20140108
  2. ACETAMINOPHEN [Concomitant]
     Route: 048
     Dates: start: 20140108
  3. METHYLPREDNISOLONE [Concomitant]
     Route: 042
  4. FOLIC ACID [Concomitant]
  5. VIT B2 [Concomitant]
  6. ACYCLOVIR [Concomitant]
     Indication: HERPES VIRUS INFECTION

REACTIONS (3)
  - Dizziness [Unknown]
  - Fatigue [Unknown]
  - Eye infection [Unknown]
